FAERS Safety Report 8409404 (Version 3)
Quarter: 2014Q1

REPORT INFORMATION
  Report Type: Spontaneous
  Country: US (occurrence: US)
  Receive Date: 20120216
  Receipt Date: 20140103
  Transmission Date: 20141002
  Serious: Yes (Hospitalization)
  Sender: FDA-Public Use
  Company Number: US-GLAXOSMITHKLINE-A0913470A

PATIENT
  Age: 54 Year
  Sex: Male
  Weight: 140.5 kg

DRUGS (7)
  1. AVANDAMET [Suspect]
     Indication: DIABETES MELLITUS
     Route: 048
     Dates: end: 2004
  2. AVANDIA [Suspect]
     Indication: DIABETES MELLITUS
     Dosage: 8MG PER DAY
     Route: 048
     Dates: start: 200411, end: 200611
  3. LOTREL [Concomitant]
  4. ZIAC [Concomitant]
  5. ZOCOR [Concomitant]
  6. AVAPRO [Concomitant]
  7. GLUCOPHAGE [Concomitant]

REACTIONS (3)
  - Myocardial infarction [Unknown]
  - Cardiovascular disorder [Unknown]
  - Cardiac disorder [Unknown]
